FAERS Safety Report 6165615-1 (Version None)
Quarter: 2009Q2

REPORT INFORMATION
  Report Type: 
  Country: None (occurrence: None)
  Receive Date: 20090421
  Receipt Date: 20080724
  Transmission Date: 20091009
  Serious: Yes (Other)
  Sender: FDA-Public Use
  Company Number: 50798

PATIENT
  Age: 58 Year
  Sex: Female

DRUGS (1)
  1. KETAMINE HCL [Suspect]
     Indication: PAIN
     Dates: start: 20080505

REACTIONS (2)
  - HYPOTENSION [None]
  - URINARY TRACT INFECTION [None]
